FAERS Safety Report 13338786 (Version 1)
Quarter: 2017Q1

REPORT INFORMATION
  Report Type: Spontaneous
  Country: PT (occurrence: PT)
  Receive Date: 20170315
  Receipt Date: 20170315
  Transmission Date: 20170428
  Serious: Yes (Congenital Anomaly, Other)
  Sender: FDA-Public Use
  Company Number: PT-JNJFOC-20170311406

PATIENT
  Age: 0 Year
  Sex: Female

DRUGS (3)
  1. REMICADE [Suspect]
     Active Substance: INFLIXIMAB
     Indication: CROHN^S DISEASE
     Route: 064
     Dates: start: 201312, end: 201412
  2. REMICADE [Suspect]
     Active Substance: INFLIXIMAB
     Indication: CROHN^S DISEASE
     Route: 064
     Dates: start: 201503
  3. REMICADE [Suspect]
     Active Substance: INFLIXIMAB
     Indication: CROHN^S DISEASE
     Dosage: UNTIL WEEK 22 OF PREGNANCY
     Route: 064
     Dates: start: 20160909

REACTIONS (5)
  - Foetal exposure during pregnancy [Recovered/Resolved]
  - Atrial septal defect [Recovering/Resolving]
  - Premature baby [Not Recovered/Not Resolved]
  - Intestinal stenosis [Recovering/Resolving]
  - Necrotising colitis [Recovering/Resolving]

NARRATIVE: CASE EVENT DATE: 2016
